FAERS Safety Report 9402890 (Version 5)
Quarter: 2013Q4

REPORT INFORMATION
  Report Type: Spontaneous
  Country: FR (occurrence: FR)
  Receive Date: 20130716
  Receipt Date: 20131212
  Transmission Date: 20140711
  Serious: Yes (Hospitalization)
  Sender: FDA-Public Use
  Company Number: FR-BAYER-2013-083152

PATIENT
  Age: 80 Year
  Sex: Male
  Weight: 62 kg

DRUGS (14)
  1. CIFLOX [Suspect]
     Indication: EAR INFECTION
     Dosage: 500 MG, TID
     Route: 048
     Dates: start: 20130515, end: 20130524
  2. CIFLOX [Suspect]
     Indication: PSEUDOMONAS INFECTION
  3. TAZOCILLINE [Suspect]
     Indication: EAR INFECTION
     Dosage: 4 G, TID
     Route: 042
     Dates: start: 20130515, end: 20130619
  4. INEXIUM [Suspect]
     Indication: GASTROOESOPHAGEAL REFLUX DISEASE
     Dosage: 1 DF, QD
     Route: 048
     Dates: start: 20130506, end: 20130524
  5. KARDEGIC [Suspect]
     Indication: MYOCARDIAL INFARCTION
     Dosage: 1 DF, QD
     Route: 048
  6. TEMERIT [Suspect]
     Indication: HYPERTENSION
     Dosage: 0.5 DF, QD
     Route: 048
  7. TAHOR [Suspect]
     Dosage: 1 DF, QD
     Route: 048
  8. AUGMENTIN [Suspect]
     Dosage: 1 G, TID
     Dates: start: 20130414, end: 20130527
  9. OMACOR [Suspect]
     Indication: MYOCARDIAL INFARCTION
     Dosage: 1 DF, QD
     Route: 048
  10. OFLOCET [Suspect]
     Dosage: UNK
     Dates: start: 20130524, end: 20130612
  11. PANTOPRAZOLE [Suspect]
     Dosage: UNK
     Dates: start: 20130524
  12. TRAMADOL [Concomitant]
     Dosage: 1 DF, QD
  13. TRAMADOL [Concomitant]
     Dosage: 50 MG, PRN
  14. DIFFU K [Concomitant]
     Dosage: 1 DF, QD

REACTIONS (4)
  - Drug reaction with eosinophilia and systemic symptoms [Unknown]
  - Medication error [None]
  - Renal failure acute [Unknown]
  - Hepatic failure [Unknown]
